FAERS Safety Report 19205274 (Version 1)
Quarter: 2021Q2

REPORT INFORMATION
  Report Type: Spontaneous
  Country: US (occurrence: US)
  Receive Date: 20210502
  Receipt Date: 20210502
  Transmission Date: 20210717
  Serious: Yes (Disabling, Other)
  Sender: FDA-Public Use
  Company Number: None

PATIENT
  Age: 29 Year
  Sex: Female
  Weight: 121.5 kg

DRUGS (1)
  1. GABAPENTIN 100MG [Suspect]
     Active Substance: GABAPENTIN
     Dosage: ?          QUANTITY:1 CAPSULE(S);?
     Route: 048

REACTIONS (9)
  - Anxiety [None]
  - Depression [None]
  - Epilepsy [None]
  - Aphasia [None]
  - Loss of personal independence in daily activities [None]
  - Memory impairment [None]
  - Speech disorder [None]
  - Gait inability [None]
  - Dysstasia [None]

NARRATIVE: CASE EVENT DATE: 20201118
